FAERS Safety Report 9808533 (Version 4)
Quarter: 2014Q2

REPORT INFORMATION
  Report Type: Report from Study
  Country: US (occurrence: US)
  Receive Date: 20140110
  Receipt Date: 20140416
  Transmission Date: 20141212
  Serious: Yes (Other)
  Sender: FDA-Public Use
  Company Number: US-JNJFOC-20140103042

PATIENT
  Age: 65 Year
  Sex: Male
  Weight: 74.39 kg

DRUGS (22)
  1. IBRUTINIB [Suspect]
     Indication: PLASMA CELL MYELOMA
     Route: 048
     Dates: end: 20131215
  2. IBRUTINIB [Suspect]
     Indication: PLASMA CELL MYELOMA
     Route: 048
     Dates: start: 20131230
  3. IBRUTINIB [Suspect]
     Indication: PLASMA CELL MYELOMA
     Route: 048
     Dates: start: 20131228
  4. IBRUTINIB [Suspect]
     Indication: PLASMA CELL MYELOMA
     Route: 048
     Dates: start: 20131223
  5. IBRUTINIB [Suspect]
     Indication: PLASMA CELL MYELOMA
     Route: 048
     Dates: start: 20131021
  6. IBRUTINIB [Suspect]
     Indication: PLASMA CELL MYELOMA
     Route: 048
     Dates: start: 20131224, end: 20131225
  7. LATANOPROST [Suspect]
     Indication: GLAUCOMA
     Route: 047
  8. GABAPENTIN [Concomitant]
     Route: 048
  9. HYDROCODONE [Concomitant]
     Route: 048
  10. NISOLDIPINE [Concomitant]
     Route: 048
  11. BYSTOLIC [Concomitant]
     Route: 048
  12. DORZOLAMIDE [Concomitant]
     Route: 047
  13. ASPIRIN [Concomitant]
     Route: 048
  14. VITAMIN B1 [Concomitant]
  15. VITAMIN B12 [Concomitant]
  16. ALPRAZOLAM [Concomitant]
     Route: 048
  17. COMPAZINE [Concomitant]
     Indication: VOMITING
     Route: 048
  18. COMPAZINE [Concomitant]
     Indication: NAUSEA
     Route: 048
  19. ALPHA LIPOIC ACID [Concomitant]
     Route: 048
  20. LOPERAMIDE HCL [Concomitant]
     Route: 048
  21. AREDIA [Concomitant]
     Route: 042
  22. ALLOPURINOL [Concomitant]
     Route: 048

REACTIONS (1)
  - Vision blurred [Not Recovered/Not Resolved]
